FAERS Safety Report 9187588 (Version 4)
Quarter: 2013Q4

REPORT INFORMATION
  Report Type: Spontaneous
  Country: US (occurrence: US)
  Receive Date: 20130325
  Receipt Date: 20131007
  Transmission Date: 20140711
  Serious: Yes (Hospitalization)
  Sender: FDA-Public Use
  Company Number: US-BAYER-2013-035908

PATIENT
  Age: 44 Year
  Sex: Female
  Weight: 102.4 kg

DRUGS (9)
  1. GIANVI [Suspect]
     Dosage: UNK
     Dates: start: 20110125, end: 20110306
  2. YAZ [Suspect]
     Dosage: UNK
     Dates: start: 20110125, end: 20110306
  3. TRAZODONE [Concomitant]
     Dosage: 50 MG, UNK
     Route: 048
     Dates: start: 20110214
  4. CEPHALEXIN [Concomitant]
     Dosage: 500 MG, UNK
     Route: 048
     Dates: start: 20110214
  5. AMOXICILLIN [Concomitant]
     Dosage: 500 MG, UNK
     Route: 048
     Dates: start: 20110308
  6. AMOXICILLIN [Concomitant]
     Dosage: 500 MG, UNK
     Route: 048
     Dates: start: 20110323
  7. LEVAQUIN [Concomitant]
     Dosage: 500 G, A DAY
  8. NAPROXEN [Concomitant]
     Dosage: 500 MG, A DAY
     Route: 048
  9. PRO-AIR [Concomitant]

REACTIONS (6)
  - Deep vein thrombosis [None]
  - Pulmonary embolism [None]
  - Pain [None]
  - Pain in extremity [None]
  - Dyspnoea [None]
  - Chest pain [None]
